FAERS Safety Report 9303104 (Version 2)
Quarter: 2013Q2

REPORT INFORMATION
  Report Type: Spontaneous
  Country: BR (occurrence: BR)
  Receive Date: 20130522
  Receipt Date: 20130523
  Transmission Date: 20140414
  Serious: Yes (Other)
  Sender: FDA-Public Use
  Company Number: PHHY2013BR049883

PATIENT
  Age: 25 Year
  Sex: Male

DRUGS (1)
  1. RITALIN LA [Suspect]
     Indication: DISTURBANCE IN ATTENTION
     Dosage: 2 DF (10 MG), A DAY
     Route: 048
     Dates: end: 20130517

REACTIONS (4)
  - Drug dependence [Recovered/Resolved]
  - Memory impairment [Unknown]
  - Performance status decreased [Recovered/Resolved]
  - Disturbance in attention [Recovered/Resolved]
